FAERS Safety Report 10285837 (Version 2)
Quarter: 2014Q3

REPORT INFORMATION
  Report Type: Spontaneous
  Country: IT (occurrence: None)
  Receive Date: 20140703
  Receipt Date: 20140814
  Transmission Date: 20150326
  Serious: Yes (Hospitalization)
  Sender: FDA-Public Use
  Company Number: AUR-APL-2014-06108

PATIENT
  Age: 85 Year
  Sex: Female

DRUGS (9)
  1. LYRICA [Suspect]
     Active Substance: PREGABALIN
     Indication: MUSCULOSKELETAL PAIN
     Route: 048
     Dates: start: 20140410, end: 20140422
  2. PALEXIA [Suspect]
     Active Substance: TAPENTADOL HYDROCHLORIDE
     Indication: MUSCULOSKELETAL PAIN
     Route: 048
     Dates: start: 20140410, end: 20140422
  3. STILNOX [Suspect]
     Active Substance: ZOLPIDEM TARTRATE
     Indication: PRODUCT USED FOR UNKNOWN INDICATION
     Route: 048
     Dates: start: 20110101, end: 20140422
  4. DELTACORTENE (PREDNISONE) UNKNOWN [Concomitant]
  5. TACHIDOL [Suspect]
     Active Substance: ACETAMINOPHEN\CODEINE PHOSPHATE
     Indication: MUSCULOSKELETAL PAIN
     Route: 048
     Dates: start: 20140410
  6. SINTROM (ACENOCOUMAROL) UNKNOWN [Concomitant]
  7. SEQUACOR (BISOPROLOL FUMARATE) UNKNOWN [Concomitant]
  8. RIVOTRIL (CLONAZEPAM) ORAL DROPS, SOLUTION [Concomitant]
  9. CITALOPRAM ORAL DROPS (CITALOPRAM) DROP [Suspect]
     Active Substance: CITALOPRAM HYDROBROMIDE
     Indication: PRODUCT USED FOR UNKNOWN INDICATION
     Route: 048
     Dates: start: 20110501, end: 20140422

REACTIONS (6)
  - Bradyphrenia [None]
  - Nausea [None]
  - Dyspnoea [None]
  - Vertigo CNS origin [None]
  - Drug interaction [None]
  - Bradykinesia [None]

NARRATIVE: CASE EVENT DATE: 20140411
